FAERS Safety Report 16292174 (Version 2)
Quarter: 2019Q3

REPORT INFORMATION
  Report Type: Other
  Country: US (occurrence: US)
  Receive Date: 20190509
  Receipt Date: 20190719
  Transmission Date: 20191004
  Serious: Yes (Hospitalization)
  Sender: FDA-Public Use
  Company Number: US-VERASTEM-2019-00075

PATIENT

DRUGS (1)
  1. COPIKTRA [Suspect]
     Active Substance: DUVELISIB
     Indication: PERIPHERAL T-CELL LYMPHOMA UNSPECIFIED
     Dosage: 75 MG, BID
     Route: 048
     Dates: start: 20190312, end: 20190416

REACTIONS (5)
  - Hypotension [Unknown]
  - Pyrexia [Unknown]
  - Prescribed overdose [Recovered/Resolved]
  - Product use in unapproved indication [Recovered/Resolved]
  - Cytomegalovirus infection [Not Recovered/Not Resolved]

NARRATIVE: CASE EVENT DATE: 20190312
